FAERS Safety Report 10243122 (Version 1)
Quarter: 2014Q2

REPORT INFORMATION
  Report Type: Spontaneous
  Country: US (occurrence: US)
  Receive Date: 20140618
  Receipt Date: 20140618
  Transmission Date: 20141212
  Serious: Yes (Death, Hospitalization, Other)
  Sender: FDA-Public Use
  Company Number: US-JNJFOC-20140606600

PATIENT
  Age: 7 Year
  Sex: Male

DRUGS (7)
  1. ACETAMINOPHEN [Suspect]
     Indication: PYREXIA
     Dosage: SECOND DOSE
     Route: 065
  2. ACETAMINOPHEN [Suspect]
     Indication: PYREXIA
     Route: 065
  3. FENRETINIDE [Interacting]
     Indication: PRODUCT USED FOR UNKNOWN INDICATION
     Route: 042
  4. CEFTRIAXONE [Interacting]
     Indication: BACTERAEMIA
     Route: 042
  5. IBUPROFEN [Suspect]
     Indication: PYREXIA
     Route: 065
  6. MONTELUKAST [Concomitant]
     Route: 065
  7. ONDANSETRON [Concomitant]
     Route: 065

REACTIONS (4)
  - Drug interaction [Fatal]
  - Acute hepatic failure [Fatal]
  - Drug-induced liver injury [Fatal]
  - Toxicity to various agents [Fatal]
